FAERS Safety Report 4705083-7 (Version None)
Quarter: 2005Q3

REPORT INFORMATION
  Report Type: 
  Country: None (occurrence: None)
  Receive Date: 20050701
  Receipt Date: 20050628
  Transmission Date: 20060218
  Serious: Yes (Disabling)
  Sender: FDA-Public Use
  Company Number: FR-SANOFI-SYNTHELABO-F01200501116

PATIENT
  Sex: Male

DRUGS (3)
  1. OXALIPLATIN [Suspect]
     Indication: COLON CANCER
     Route: 042
     Dates: start: 20050523, end: 20050523
  2. CAPECITABINE [Suspect]
     Route: 048
     Dates: start: 20050523, end: 20050530
  3. BEVACIZUMAB [Suspect]
     Route: 042
     Dates: start: 20050523, end: 20050523

REACTIONS (1)
  - ASTHENIA [None]
